FAERS Safety Report 16834036 (Version 2)
Quarter: 2019Q3

REPORT INFORMATION
  Report Type: Spontaneous
  Country: US (occurrence: US)
  Receive Date: 20190920
  Receipt Date: 20190930
  Transmission Date: 20191005
  Serious: No
  Sender: FDA-Public Use
  Company Number: US-PFIZER INC-2019406238

PATIENT
  Age: 72 Year
  Sex: Female
  Weight: 97.51 kg

DRUGS (1)
  1. IBRANCE [Suspect]
     Active Substance: PALBOCICLIB
     Indication: BREAST CANCER METASTATIC
     Dosage: 125 MG, CYCLIC (DAY1-21 EVERY 28 DAY)
     Route: 048
     Dates: start: 20190910

REACTIONS (2)
  - Nausea [Unknown]
  - Fatigue [Unknown]
